FAERS Safety Report 9292851 (Version 1)
Quarter: 2013Q2

REPORT INFORMATION
  Report Type: Spontaneous
  Country: US (occurrence: None)
  Receive Date: 20130513
  Receipt Date: 20130513
  Transmission Date: 20140414
  Serious: Yes (Other)
  Sender: FDA-Public Use
  Company Number: AE13-035

PATIENT
  Sex: Female

DRUGS (2)
  1. DEXPAK [Suspect]
     Indication: UPPER RESPIRATORY TRACT INFECTION
     Route: 048
     Dates: start: 20130419, end: 20130429
  2. LEVAQUIN [Concomitant]

REACTIONS (4)
  - Depression [None]
  - Fluid retention [None]
  - Hyperphagia [None]
  - Suicidal ideation [None]
